FAERS Safety Report 5815209-X (Version None)
Quarter: 2008Q3

REPORT INFORMATION
  Report Type: 
  Country: None (occurrence: None)
  Receive Date: 20080718
  Receipt Date: 20080710
  Transmission Date: 20090109
  Serious: Yes (Other)
  Sender: FDA-Public Use
  Company Number: US-ABBOTT-08P-163-0462361-00

PATIENT
  Sex: Female
  Weight: 86.26 kg

DRUGS (4)
  1. HUMIRA [Suspect]
     Indication: RHEUMATOID ARTHRITIS
     Route: 058
     Dates: start: 20070701
  2. PIOGLITAZONE [Concomitant]
     Indication: DIABETES MELLITUS
     Route: 048
  3. FOLIC ACID [Concomitant]
     Indication: VITAMIN SUPPLEMENTATION
     Route: 048
  4. IBUPROFEN [Concomitant]
     Indication: PAIN
     Dosage: TWICE A DAY AS NEEDED
     Route: 048

REACTIONS (5)
  - ARTHRALGIA [None]
  - CARPAL TUNNEL SYNDROME [None]
  - DRUG EFFECT DECREASED [None]
  - HYPOAESTHESIA [None]
  - MENISCUS LESION [None]
